FAERS Safety Report 6894528-2 (Version None)
Quarter: 2010Q3

REPORT INFORMATION
  Report Type: 
  Country: None (occurrence: None)
  Receive Date: 20100802
  Receipt Date: 20100721
  Transmission Date: 20110219
  Serious: Yes (Death, Hospitalization)
  Sender: FDA-Public Use
  Company Number: DE-BAYER-201020396GPV

PATIENT
  Age: 71 Year
  Sex: Male
  Weight: 90 kg

DRUGS (7)
  1. NEXAVAR [Suspect]
     Indication: HEPATIC NEOPLASM MALIGNANT
     Dosage: UNIT DOSE: 200 MG
     Route: 048
     Dates: start: 20090107
  2. NEXAVAR [Suspect]
     Dosage: UNIT DOSE: 200 MG
     Route: 048
     Dates: start: 20090128, end: 20090310
  3. DIGITOXIN [Concomitant]
  4. ACTRAPID [Concomitant]
  5. LANTUS [Concomitant]
  6. CLEXANE [Concomitant]
     Dosage: 1 AMP / DAY
  7. EPROSARTAN [Concomitant]

REACTIONS (5)
  - ABDOMINAL PAIN UPPER [None]
  - DEATH [None]
  - FATIGUE [None]
  - HYPERTENSIVE CRISIS [None]
  - PYREXIA [None]
